FAERS Safety Report 9500706 (Version 1)
Quarter: 2013Q1

REPORT INFORMATION
  Report Type: Spontaneous
  Country: US (occurrence: None)
  Receive Date: 20130107
  Receipt Date: 20130107
  Transmission Date: 20140127
  Serious: No
  Sender: FDA-Public Use
  Company Number: PHEH2012US017282

PATIENT
  Age: 49 Year
  Sex: Female

DRUGS (1)
  1. GILENYA (FTY) CAPSULE, 0.5MG [Suspect]
     Route: 048

REACTIONS (6)
  - Nausea [None]
  - Myalgia [None]
  - Oedema peripheral [None]
  - Palpitations [None]
  - Hyperhidrosis [None]
  - Headache [None]
